FAERS Safety Report 8816389 (Version 1)
Quarter: 2012Q4

REPORT INFORMATION
  Report Type: Spontaneous
  Country: NZ (occurrence: None)
  Receive Date: 20120927
  Receipt Date: 20120927
  Transmission Date: 20130627
  Serious: Yes (Life-Threatening)
  Sender: FDA-Public Use
  Company Number: 1421576

PATIENT
  Age: 9 Year
  Sex: Female

DRUGS (2)
  1. VANCOMYCIN HYDROCHLORIDE [Suspect]
     Indication: DRUG USE FOR UNKNOWN INDICATION
  2. CEFTRIAXONE SODIUM [Suspect]

REACTIONS (3)
  - Leukocytosis [None]
  - Rash morbilliform [None]
  - Pruritus [None]
